FAERS Safety Report 5267317-2 (Version None)
Quarter: 2007Q1

REPORT INFORMATION
  Report Type: 
  Country: None (occurrence: None)
  Receive Date: 20070316
  Receipt Date: 20070306
  Transmission Date: 20070707
  Serious: Yes (Disabling)
  Sender: FDA-Public Use
  Company Number: PT-GLAXOSMITHKLINE-B0462012A

PATIENT
  Age: 73 Year
  Sex: Female
  Weight: 65 kg

DRUGS (5)
  1. AVANDAMET [Suspect]
     Route: 048
     Dates: end: 20070201
  2. METFORMIN HYDROCHLORIDE [Suspect]
     Dosage: 1000MG PER DAY
     Route: 048
     Dates: end: 20070201
  3. FUROSEMIDE [Concomitant]
     Dosage: 40MG PER DAY
     Route: 048
     Dates: end: 20070101
  4. FLAVONOIDS [Concomitant]
     Dosage: 1000MG PER DAY
     Route: 048
     Dates: end: 20070101
  5. GLIMEPIRIDE [Concomitant]
     Dosage: 2MG PER DAY
     Route: 048
     Dates: end: 20060201

REACTIONS (8)
  - ABDOMINAL PAIN [None]
  - ANOREXIA [None]
  - DIZZINESS [None]
  - FATIGUE [None]
  - HEADACHE [None]
  - HYPOGLYCAEMIA [None]
  - NAUSEA [None]
  - VOMITING [None]
